FAERS Safety Report 9847407 (Version 1)
Quarter: 2014Q1

REPORT INFORMATION
  Report Type: Report from Study
  Country: US (occurrence: US)
  Receive Date: 20140127
  Receipt Date: 20140127
  Transmission Date: 20141002
  Serious: Yes (Hospitalization)
  Sender: FDA-Public Use
  Company Number: US-ABBVIE-14P-163-1192055-00

PATIENT
  Age: 64 Year
  Sex: Female
  Weight: 69.01 kg

DRUGS (14)
  1. HUMIRA [Suspect]
     Indication: CROHN^S DISEASE
     Route: 058
     Dates: start: 20121203, end: 20121203
  2. HUMIRA [Suspect]
     Route: 058
     Dates: start: 20121217, end: 20121217
  3. HUMIRA [Suspect]
     Route: 058
     Dates: start: 20121231
  4. DILTIAZEM [Concomitant]
     Indication: HYPERTENSION
  5. LATANOPROST [Concomitant]
     Indication: GLAUCOMA
  6. LEVOTHYROXINE [Concomitant]
     Indication: HYPOTHYROIDISM
  7. IMODIUM [Concomitant]
     Indication: DIARRHOEA
  8. LIALDA [Concomitant]
     Indication: CROHN^S DISEASE
  9. METFORMIN [Concomitant]
     Indication: DIABETES MELLITUS
  10. DIOVAN [Concomitant]
     Indication: HYPERTENSION
  11. TYLENOL [Concomitant]
     Indication: PAIN
     Dosage: AS NEEDED
  12. FLAX SEED OIL [Concomitant]
     Indication: PRODUCT USED FOR UNKNOWN INDICATION
  13. FISH OIL [Concomitant]
     Indication: PRODUCT USED FOR UNKNOWN INDICATION
  14. HAIR, SKIN AND NAIL VITAMIN [Concomitant]
     Indication: PRODUCT USED FOR UNKNOWN INDICATION

REACTIONS (4)
  - Rectocele [Recovered/Resolved]
  - Dry skin [Not Recovered/Not Resolved]
  - Skin exfoliation [Not Recovered/Not Resolved]
  - Pruritus [Not Recovered/Not Resolved]
